FAERS Safety Report 9803986 (Version 2)
Quarter: 2014Q1

REPORT INFORMATION
  Report Type: Spontaneous
  Country: AU (occurrence: None)
  Receive Date: 20140103
  Receipt Date: 20140122
  Transmission Date: 20141002
  Serious: Yes (Other)
  Sender: FDA-Public Use
  Company Number: SYM-2013-14295

PATIENT
  Age: 6 Year
  Sex: Male
  Weight: 20 kg

DRUGS (1)
  1. TAMBOCOR [Suspect]
     Indication: ARRHYTHMIA
     Route: 048
     Dates: start: 201306, end: 20131105

REACTIONS (8)
  - Visual impairment [None]
  - Dizziness [None]
  - Abdominal pain [None]
  - Dyspnoea [None]
  - Depressed mood [None]
  - Hallucination, auditory [None]
  - Memory impairment [None]
  - Anger [None]
